FAERS Safety Report 12634401 (Version 1)
Quarter: 2016Q3

REPORT INFORMATION
  Report Type: Spontaneous
  Country: US (occurrence: US)
  Receive Date: 20160809
  Receipt Date: 20160809
  Transmission Date: 20161109
  Serious: No
  Sender: FDA-Public Use
  Company Number: US-WATSON-2016-03787

PATIENT
  Sex: Male

DRUGS (2)
  1. BUDESONIDE (WATSON LABORATORIES) [Suspect]
     Active Substance: BUDESONIDE
     Indication: CHRONIC SINUSITIS
     Dosage: UNK, PRN
     Route: 055
  2. SALINE                             /00075401/ [Suspect]
     Active Substance: SODIUM CHLORIDE
     Indication: CHRONIC SINUSITIS
     Dosage: UNK, PRN
     Route: 055

REACTIONS (4)
  - Product use issue [Unknown]
  - Underdose [Unknown]
  - Wrong technique in product usage process [Unknown]
  - Drug effect decreased [Unknown]
